FAERS Safety Report 11052273 (Version 6)
Quarter: 2016Q4

REPORT INFORMATION
  Report Type: Report from Study
  Country: BR (occurrence: BR)
  Receive Date: 20150421
  Receipt Date: 20161128
  Transmission Date: 20170206
  Serious: Yes (Other)
  Sender: FDA-Public Use
  Company Number: PHHY2012BR112441

PATIENT
  Age: 46 Year
  Sex: Female
  Weight: 43 kg

DRUGS (5)
  1. EXJADE [Suspect]
     Active Substance: DEFERASIROX
     Dosage: 1500 MG, QD
     Route: 048
  2. HYDREA [Concomitant]
     Active Substance: HYDROXYUREA
     Indication: PRODUCT USED FOR UNKNOWN INDICATION
     Dosage: UNK
     Route: 065
  3. EXJADE [Suspect]
     Active Substance: DEFERASIROX
     Indication: SICKLE CELL ANAEMIA
     Dosage: 35 MG/KG, QD (3 DF OF 500 MG)
     Route: 048
     Dates: start: 20090101
  4. CALCIUM [Concomitant]
     Active Substance: CALCIUM
     Indication: PRODUCT USED FOR UNKNOWN INDICATION
     Dosage: UNK
     Route: 065
  5. FOLIC ACID. [Concomitant]
     Active Substance: FOLIC ACID
     Indication: PRODUCT USED FOR UNKNOWN INDICATION
     Dosage: UNK UNK, QW3
     Route: 065

REACTIONS (26)
  - Diarrhoea [Not Recovered/Not Resolved]
  - Malaise [Unknown]
  - Drug intolerance [Unknown]
  - Osteopenia [Unknown]
  - Drug ineffective [Unknown]
  - Haematocrit abnormal [Not Recovered/Not Resolved]
  - Dysgeusia [Recovered/Resolved]
  - Osteoporosis [Unknown]
  - Underweight [Unknown]
  - Hypervitaminosis [Unknown]
  - Renal disorder [Unknown]
  - Nausea [Unknown]
  - Abdominal discomfort [Unknown]
  - Weight decreased [Unknown]
  - Dyspepsia [Unknown]
  - Decreased appetite [Unknown]
  - Dysphagia [Recovering/Resolving]
  - Abdominal pain upper [Recovered/Resolved]
  - Fatigue [Recovering/Resolving]
  - Diarrhoea [Recovered/Resolved]
  - Nausea [Recovered/Resolved]
  - Amnesia [Unknown]
  - Blood iron abnormal [Not Recovered/Not Resolved]
  - Serum ferritin increased [Recovering/Resolving]
  - Asthenia [Unknown]
  - Abdominal pain upper [Unknown]

NARRATIVE: CASE EVENT DATE: 20141223
